FAERS Safety Report 7158578-3 (Version None)
Quarter: 2010Q4

REPORT INFORMATION
  Report Type: 
  Country: None (occurrence: None)
  Receive Date: 20101214
  Receipt Date: 20100525
  Transmission Date: 20110411
  Serious: No
  Sender: FDA-Public Use
  Company Number: US-ASTRAZENECA-2010SE23995

PATIENT
  Age: 65 Year
  Sex: Female
  Weight: 63.5 kg

DRUGS (6)
  1. CRESTOR [Suspect]
     Indication: HYPERCHOLESTEROLAEMIA
     Route: 048
     Dates: start: 20100101
  2. PLAVIX [Concomitant]
  3. PRILOSEC [Concomitant]
  4. CELESTAZOLE [Concomitant]
  5. REMAPRIL [Concomitant]
  6. ASPIRIN [Concomitant]

REACTIONS (1)
  - ALOPECIA [None]
